FAERS Safety Report 5207604-7 (Version None)
Quarter: 2007Q1

REPORT INFORMATION
  Report Type: 
  Country: None (occurrence: None)
  Receive Date: 20070112
  Receipt Date: 20070103
  Transmission Date: 20070707
  Serious: Yes (Hospitalization, Disabling)
  Sender: FDA-Public Use
  Company Number: NL-PFIZER INC-2007001507

PATIENT
  Sex: Female
  Weight: 64 kg

DRUGS (3)
  1. ALPRAZOLAM [Suspect]
     Indication: BORDERLINE PERSONALITY DISORDER
     Route: 048
     Dates: start: 19980101, end: 20060101
  2. CITALOPRAM HYDROBROMIDE [Concomitant]
     Route: 048
     Dates: start: 19980101, end: 20060101
  3. PIMOZIDE [Concomitant]
     Route: 048
     Dates: start: 19980101, end: 20060101

REACTIONS (2)
  - EMOTIONAL DISORDER [None]
  - SUICIDAL IDEATION [None]
